FAERS Safety Report 7365663-X (Version None)
Quarter: 2011Q1

REPORT INFORMATION
  Report Type: 
  Country: None (occurrence: None)
  Receive Date: 20110225
  Receipt Date: 20101222
  Transmission Date: 20110831
  Serious: No
  Sender: FDA-Public Use
  Company Number: 320410

PATIENT
  Age: 60 Year
  Sex: Female

DRUGS (7)
  1. EFFEXOR XR [Concomitant]
  2. VESICARE [Concomitant]
  3. COREG [Concomitant]
  4. DIOVAN [Concomitant]
  5. ACTOS [Concomitant]
  6. METFORMIN HCL [Concomitant]
  7. VICTOZA [Suspect]
     Indication: PRODUCT USED FOR UNKNOWN INDICATION
     Dosage: 0.6 MG, QD, SUBCUTANEOUS
     Route: 057

REACTIONS (1)
  - FATIGUE [None]
